FAERS Safety Report 20631324 (Version 1)
Quarter: 2022Q1

REPORT INFORMATION
  Report Type: Spontaneous
  Country: US (occurrence: None)
  Receive Date: 20220323
  Receipt Date: 20220323
  Transmission Date: 20220423
  Serious: No
  Sender: FDA-Public Use
  Company Number: None

PATIENT
  Age: 25 Year
  Sex: Female
  Weight: 54.9 kg

DRUGS (6)
  1. DEXTROAMPHET SACCHARAT, AMPHET ASPARTATE, DEXTROAMPHET SULFATE AND AMP [Suspect]
     Active Substance: AMPHETAMINE ASPARTATE\AMPHETAMINE SULFATE\DEXTROAMPHETAMINE SACCHARATE\DEXTROAMPHETAMINE SULFATE
     Indication: Attention deficit hyperactivity disorder
     Dosage: FREQUENCY : AS NEEDED;?
     Route: 048
     Dates: start: 20220228
  2. MENAQUINONE 6 [Concomitant]
     Active Substance: MENAQUINONE 6
  3. VITAMIN D3 [Concomitant]
     Active Substance: CHOLECALCIFEROL
  4. FISH OIL [Concomitant]
     Active Substance: FISH OIL
  5. women^s multivitamin [Concomitant]
  6. IRON [Concomitant]
     Active Substance: IRON

REACTIONS (13)
  - Manufacturing issue [None]
  - Fatigue [None]
  - Confusional state [None]
  - Nausea [None]
  - Migraine [None]
  - Irritability [None]
  - Bruxism [None]
  - Teething [None]
  - Dry mouth [None]
  - Dizziness [None]
  - Peripheral coldness [None]
  - Emotional disorder [None]
  - Product quality issue [None]
